FAERS Safety Report 14360285 (Version 11)
Quarter: 2021Q2

REPORT INFORMATION
  Report Type: Spontaneous
  Country: CZ (occurrence: CZ)
  Receive Date: 20180106
  Receipt Date: 20210517
  Transmission Date: 20210716
  Serious: Yes (Life-Threatening, Hospitalization, Other)
  Sender: FDA-Public Use
  Company Number: CZ-AUROBINDO-AUR-APL-2018-000568

PATIENT
  Age: 51 Year
  Sex: Female

DRUGS (29)
  1. PARACETAMOL [Interacting]
     Active Substance: ACETAMINOPHEN
     Indication: PYREXIA
     Dosage: 4 GRAM, DAILY
     Route: 065
  2. PAROXETINE FILM?COATED TABLET [Interacting]
     Active Substance: PAROXETINE
     Indication: PSYCHIATRIC SYMPTOM
  3. VORICONAZOLE. [Suspect]
     Active Substance: VORICONAZOLE
     Indication: PNEUMONIA
     Dosage: UNK
     Route: 065
  4. PIPERACILLIN AND TAZOBACTAM [Suspect]
     Active Substance: PIPERACILLIN SODIUM\TAZOBACTAM SODIUM
     Indication: INFECTION
     Dosage: UNK
     Route: 065
  5. CISATRACURIUM. [Suspect]
     Active Substance: CISATRACURIUM
     Indication: MECHANICAL VENTILATION
     Dosage: 20 MILLIGRAM, UNK
     Route: 065
  6. CODEINE PHOSPHATE [Interacting]
     Active Substance: CODEINE PHOSPHATE
     Indication: PAIN
     Dosage: UNK
     Route: 065
  7. ESMOLOL [Suspect]
     Active Substance: ESMOLOL HYDROCHLORIDE
     Indication: CARDIOVASCULAR DISORDER
     Dosage: UNK
     Route: 065
  8. INDOMETHACIN. [Suspect]
     Active Substance: INDOMETHACIN
     Indication: PAIN
     Dosage: UNK
     Route: 065
  9. TRAMADOL. [Interacting]
     Active Substance: TRAMADOL
     Indication: ANALGESIC THERAPY
  10. TRAZODONE [Interacting]
     Active Substance: TRAZODONE HYDROCHLORIDE
     Indication: PSYCHIATRIC SYMPTOM
     Dosage: 300 MILLIGRAM, ONCE A DAY
     Route: 048
  11. CHLORPROTHIXENE [Suspect]
     Active Substance: CHLORPROTHIXENE
     Indication: MENTAL DISORDER
  12. TRAMADOL. [Interacting]
     Active Substance: TRAMADOL
     Indication: PAIN
     Dosage: UNK
     Route: 065
  13. INDOMETHACIN. [Suspect]
     Active Substance: INDOMETHACIN
     Indication: ANALGESIC THERAPY
  14. LEVOFLOXACIN. [Interacting]
     Active Substance: LEVOFLOXACIN
     Indication: ANTIBIOTIC THERAPY
     Dosage: UNK
     Route: 065
  15. METOCLOPRAMIDE. [Interacting]
     Active Substance: METOCLOPRAMIDE
     Indication: PRODUCT USED FOR UNKNOWN INDICATION
     Dosage: UNK
     Route: 065
  16. MIDAZOLAM. [Suspect]
     Active Substance: MIDAZOLAM
     Indication: MYOCLONUS
  17. NOREPINEPHRINE. [Suspect]
     Active Substance: NOREPINEPHRINE
     Indication: SINUS TACHYCARDIA
     Dosage: UNK
     Route: 065
  18. MELOXICAM. [Suspect]
     Active Substance: MELOXICAM
     Indication: PAIN
     Dosage: UNK
     Route: 048
  19. SUFENTANIL [Interacting]
     Active Substance: SUFENTANIL
     Indication: SEDATION
     Dosage: 10 MICROGRAM/HOUR
     Route: 065
  20. IVABRADINE [Concomitant]
     Active Substance: IVABRADINE
     Indication: SINUS TACHYCARDIA
     Dosage: 10 MILLIGRAM, DAILY
     Route: 048
  21. PAROXETINE FILM?COATED TABLET [Suspect]
     Active Substance: PAROXETINE
     Indication: MENTAL DISORDER
     Dosage: 60 MILLIGRAM, ONCE A DAY
     Route: 048
  22. MIDAZOLAM. [Suspect]
     Active Substance: MIDAZOLAM
     Indication: SEDATION
     Dosage: 15 MG/H
     Route: 065
  23. BROMAZEPAM [Concomitant]
     Active Substance: BROMAZEPAM
     Indication: PSYCHIATRIC SYMPTOM
     Dosage: 2 MILLIGRAM, DAILY
     Route: 048
  24. BROMAZEPAM [Concomitant]
     Active Substance: BROMAZEPAM
     Indication: MENTAL DISORDER
  25. PARACETAMOL [Interacting]
     Active Substance: ACETAMINOPHEN
     Indication: PAIN
  26. CHLORPROTHIXENE [Suspect]
     Active Substance: CHLORPROTHIXENE
     Indication: PSYCHIATRIC SYMPTOM
     Dosage: 50 MILLIGRAM, ONCE A DAY
     Route: 048
  27. HYDROXYZINE [Suspect]
     Active Substance: HYDROXYZINE HYDROCHLORIDE
     Indication: PRODUCT USED FOR UNKNOWN INDICATION
     Dosage: UNK
     Route: 065
  28. MELOXICAM. [Suspect]
     Active Substance: MELOXICAM
     Indication: ANALGESIC THERAPY
  29. BUDESONIDE;FORMOTEROL [Concomitant]
     Active Substance: BUDESONIDE\FORMOTEROL
     Indication: ASTHMA
     Dosage: UNK, 160/4.5 MG
     Route: 055

REACTIONS (30)
  - Serotonin syndrome [Recovering/Resolving]
  - Depressed level of consciousness [Unknown]
  - Brain oedema [Unknown]
  - Myoglobin blood increased [Unknown]
  - Hypertension [Unknown]
  - Candida pneumonia [Unknown]
  - Metabolic acidosis [Recovered/Resolved]
  - Apallic syndrome [Unknown]
  - Delirium [Unknown]
  - Circulatory collapse [Unknown]
  - Drug ineffective [Not Recovered/Not Resolved]
  - Pneumonia fungal [Unknown]
  - Overdose [Not Recovered/Not Resolved]
  - Bronchopulmonary aspergillosis [Unknown]
  - Dyspnoea [Unknown]
  - Muscle spasms [Unknown]
  - Arthralgia [Unknown]
  - Tachycardia [Unknown]
  - Agitation [Unknown]
  - Myoclonus [Unknown]
  - Drug interaction [Unknown]
  - Restlessness [Unknown]
  - Mydriasis [Unknown]
  - Hyperhidrosis [Unknown]
  - Intentional product misuse [Recovering/Resolving]
  - Tremor [Unknown]
  - Oliguria [Unknown]
  - Pyrexia [Unknown]
  - Leukocytosis [Unknown]
  - Sinus tachycardia [Unknown]
